FAERS Safety Report 25847774 (Version 1)
Quarter: 2025Q3

REPORT INFORMATION
  Report Type: Spontaneous
  Country: EU (occurrence: EU)
  Receive Date: 20250925
  Receipt Date: 20250925
  Transmission Date: 20251021
  Serious: Yes (Other)
  Sender: NOVO NORDISK
  Company Number: None

PATIENT
  Age: 63 Year
  Sex: Male
  Weight: 58 kg

DRUGS (2)
  1. EZETIMIBE\SIMVASTATIN [Suspect]
     Active Substance: EZETIMIBE\SIMVASTATIN
     Indication: Hypercholesterolaemia
     Route: 048
     Dates: start: 20250315, end: 20250711
  2. OZEMPIC [Suspect]
     Active Substance: SEMAGLUTIDE
     Indication: Type 2 diabetes mellitus
     Dosage: 1 MG, QW
     Route: 058
     Dates: start: 20241215, end: 20250711

REACTIONS (1)
  - Hepatic cytolysis [Recovered/Resolved]

NARRATIVE: CASE EVENT DATE: 20250708
